FAERS Safety Report 9658754 (Version 2)
Quarter: 2013Q4

REPORT INFORMATION
  Report Type: Spontaneous
  Country: US (occurrence: US)
  Receive Date: 20131030
  Receipt Date: 20131030
  Transmission Date: 20140711
  Serious: No
  Sender: FDA-Public Use
  Company Number: US-PURDUE-USA-2011-0077750

PATIENT
  Sex: Female

DRUGS (1)
  1. OXYCONTIN (NDA 22-272) [Suspect]
     Indication: PAIN
     Dosage: 60 MG, 2 TABS AM, 1 TAB NOON, 1 TAB PM

REACTIONS (3)
  - Inadequate analgesia [Unknown]
  - Drug effect delayed [Unknown]
  - Drug effect decreased [Unknown]
